FAERS Safety Report 19289330 (Version 1)
Quarter: 2021Q2

REPORT INFORMATION
  Report Type: Spontaneous
  Country: FR (occurrence: FR)
  Receive Date: 20210521
  Receipt Date: 20210521
  Transmission Date: 20210717
  Serious: Yes (Death)
  Sender: FDA-Public Use
  Company Number: FR-009507513-2105FRA003803

PATIENT
  Age: 81 Year
  Sex: Male
  Weight: 72.1 kg

DRUGS (1)
  1. POSACONAZOLE [Suspect]
     Active Substance: POSACONAZOLE
     Dosage: 500 MILLIGRAM, QD
     Route: 048
     Dates: start: 20210420, end: 20210422

REACTIONS (2)
  - Acute kidney injury [Fatal]
  - Hepatic failure [Fatal]

NARRATIVE: CASE EVENT DATE: 20210422
